FAERS Safety Report 10545382 (Version 1)
Quarter: 2014Q4

REPORT INFORMATION
  Report Type: Spontaneous
  Country: IT (occurrence: IT)
  Receive Date: 20141027
  Receipt Date: 20141027
  Transmission Date: 20150529
  Serious: Yes (Hospitalization)
  Sender: FDA-Public Use
  Company Number: IT-BAYER-2014-152125

PATIENT
  Age: 86 Year
  Sex: Female

DRUGS (10)
  1. EUTIROX [Concomitant]
     Active Substance: LEVOTHYROXINE SODIUM
     Dosage: 125 ?G, DAILY DOSE
  2. CARDIOASPIRIN [Suspect]
     Active Substance: ASPIRIN
     Indication: THROMBOSIS PROPHYLAXIS
     Dosage: 100 MG, DAILY DOSE
     Route: 048
     Dates: start: 20140101, end: 20140901
  3. METFORMIN [Concomitant]
     Active Substance: METFORMIN HYDROCHLORIDE
     Dosage: 2000 MG, DAILY DOSE
     Route: 048
  4. VOLTAREN [Suspect]
     Active Substance: DICLOFENAC SODIUM
     Indication: BACK PAIN
     Dosage: 2 DF, DAILY DOSE
     Route: 048
     Dates: start: 20140825, end: 20140901
  5. LASIX [Concomitant]
     Active Substance: FUROSEMIDE
     Dosage: 50 MG, DAILY DOSE
     Route: 048
  6. LANSOX [Concomitant]
     Active Substance: LANSOPRAZOLE
     Dosage: UNK
     Route: 048
  7. NORVASC [Concomitant]
     Active Substance: AMLODIPINE BESYLATE
     Dosage: UNK
     Route: 048
  8. ZYLORIC [Concomitant]
     Active Substance: ALLOPURINOL
     Dosage: 100 MG, DAILY DOSE
     Route: 048
  9. TRITTICO [Concomitant]
     Active Substance: TRAZODONE HYDROCHLORIDE
     Dosage: UNK
     Route: 048
  10. MIRAPEXIN [Concomitant]
     Active Substance: PRAMIPEXOLE
     Dosage: 0.18 MG, DAILY DOSE
     Route: 048

REACTIONS (3)
  - Rectal haemorrhage [Unknown]
  - Drug abuse [Unknown]
  - Melaena [Unknown]

NARRATIVE: CASE EVENT DATE: 20140901
